FAERS Safety Report 6179884-5 (Version None)
Quarter: 2009Q2

REPORT INFORMATION
  Report Type: 
  Country: None (occurrence: None)
  Receive Date: 20090505
  Receipt Date: 20090424
  Transmission Date: 20091009
  Serious: Yes (Death)
  Sender: FDA-Public Use
  Company Number: IN-BAXTER-2009BH007582

PATIENT
  Age: 46 Year
  Sex: Female

DRUGS (5)
  1. DIANEAL [Suspect]
     Indication: PERITONEAL DIALYSIS
     Route: 033
     Dates: start: 20090410
  2. DIANEAL [Suspect]
     Route: 033
     Dates: start: 20090410
  3. DIANEAL [Suspect]
     Route: 033
     Dates: end: 20090410
  4. EXTRANEAL [Suspect]
     Indication: PERITONEAL DIALYSIS
     Route: 033
     Dates: start: 20090410
  5. EXTRANEAL [Suspect]
     Route: 033
     Dates: end: 20090410

REACTIONS (1)
  - CARDIAC DISORDER [None]
